FAERS Safety Report 7889238-9 (Version None)
Quarter: 2011Q4

REPORT INFORMATION
  Report Type: 
  Country: None (occurrence: None)
  Receive Date: 20111101
  Receipt Date: 20111024
  Transmission Date: 20120403
  Serious: Yes (Other)
  Sender: FDA-Public Use
  Company Number: AUR-APL-2011-05555

PATIENT
  Age: 74 Year
  Sex: Male
  Weight: 86.1834 kg

DRUGS (6)
  1. VITAMIN B12 )CUANOCOBALAMIN) [Concomitant]
  2. DIGOXIN [Concomitant]
  3. WARFARIN SODIUM [Concomitant]
  4. MULTIVITAMIN (VIGRAN) [Concomitant]
  5. FOLIC ACID [Concomitant]
  6. CIPROFLOXACIN HYDROCHLORIDE [Suspect]
     Indication: SINUSITIS
     Dosage: 1000 MG (500 MG, 2 IN 1 D), ORA
     Route: 048
     Dates: start: 20110922, end: 20110927

REACTIONS (1)
  - OEDEMA PERIPHERAL [None]
